FAERS Safety Report 25393936 (Version 2)
Quarter: 2025Q2

REPORT INFORMATION
  Report Type: Spontaneous
  Country: IT (occurrence: IT)
  Receive Date: 20250604
  Receipt Date: 20250626
  Transmission Date: 20250717
  Serious: Yes (Death, Other)
  Sender: AUROBINDO
  Company Number: IT-MINISAL02-1041012

PATIENT
  Age: 77 Year
  Sex: Male
  Weight: 75 kg

DRUGS (9)
  1. PANTOPRAZOLE [Interacting]
     Active Substance: PANTOPRAZOLE
     Indication: Product used for unknown indication
     Dosage: 40 MILLIGRAM, ONCE A DAY
     Route: 065
     Dates: start: 20250426, end: 20250430
  2. PIPERACILLIN AND TAZOBACTAM [Interacting]
     Active Substance: PIPERACILLIN SODIUM\TAZOBACTAM SODIUM
     Indication: Product used for unknown indication
     Dosage: 4.5 GRAM, 3 TIMES A DAY
     Route: 042
     Dates: start: 20250427, end: 20250430
  3. METHOTREXATE SODIUM [Interacting]
     Active Substance: METHOTREXATE SODIUM
     Indication: Central nervous system lymphoma
     Route: 042
     Dates: start: 20250405, end: 20250405
  4. METHOTREXATE SODIUM [Interacting]
     Active Substance: METHOTREXATE SODIUM
     Route: 042
     Dates: start: 20250429, end: 20250429
  5. ACYCLOVIR [Concomitant]
     Active Substance: ACYCLOVIR
     Indication: Product used for unknown indication
     Route: 065
  6. AMLODIPINE [Concomitant]
     Active Substance: AMLODIPINE BESYLATE
     Indication: Product used for unknown indication
     Route: 065
  7. BISOPROLOL [Concomitant]
     Active Substance: BISOPROLOL
     Indication: Product used for unknown indication
     Route: 065
  8. Delapril;Indapamide [Concomitant]
     Indication: Product used for unknown indication
     Route: 065
  9. RITUXIMAB [Concomitant]
     Active Substance: RITUXIMAB
     Indication: Product used for unknown indication
     Route: 065

REACTIONS (1)
  - Acute kidney injury [Fatal]

NARRATIVE: CASE EVENT DATE: 20250430
